FAERS Safety Report 4393630-7 (Version None)
Quarter: 2004Q3

REPORT INFORMATION
  Report Type: 
  Country: None (occurrence: None)
  Receive Date: 20040709
  Receipt Date: 20040705
  Transmission Date: 20050211
  Serious: Yes (Other)
  Sender: FDA-Public Use
  Company Number: 200416632GDDC

PATIENT
  Age: 69 Year
  Sex: Male

DRUGS (8)
  1. INSULIN GLARGINE [Suspect]
     Route: 058
     Dates: start: 20040604, end: 20040704
  2. OPTIPEN (INSULIN PUMP) [Concomitant]
  3. GLIMEPIRIDE [Concomitant]
     Indication: DIABETES MELLITUS NON-INSULIN-DEPENDENT
     Dates: start: 20031201
  4. ASPIRIN [Concomitant]
     Indication: MYOCARDIAL INFARCTION
     Dates: start: 20031201
  5. FENOFIBRATE [Concomitant]
     Indication: HYPERLIPIDAEMIA
     Dates: start: 20031201
  6. TRANDOLAPRIL [Concomitant]
     Indication: MYOCARDIAL INFARCTION
     Dates: start: 20031201
  7. TRIMETAZIDINE [Concomitant]
     Indication: MYOCARDIAL INFARCTION
     Dates: start: 20031201
  8. METOPROLOL [Concomitant]
     Indication: MYOCARDIAL INFARCTION
     Dates: start: 20031201

REACTIONS (1)
  - VERTIGO [None]
